FAERS Safety Report 4347377-3 (Version None)
Quarter: 2004Q2

REPORT INFORMATION
  Report Type: 
  Country: None (occurrence: None)
  Receive Date: 20040426
  Receipt Date: 20040426
  Transmission Date: 20050107
  Serious: Yes (Other)
  Sender: FDA-Public Use
  Company Number: None

PATIENT
  Sex: Female
  Weight: 154.8 kg

DRUGS (9)
  1. GEMCITABINE 100 MG/ML LILLY ONCOLOGY [Suspect]
     Indication: PANCREATIC CARCINOMA
     Dosage: 1000 MG/M2 DAY 1/15 IV
     Route: 042
     Dates: start: 20040121, end: 20040331
  2. CISPLATIN [Suspect]
     Indication: PANCREATIC CARCINOMA
     Dosage: 20 MG/M2 DAY 1/15 IV
     Route: 042
     Dates: start: 20040121, end: 20040331
  3. LOPRESSOR [Concomitant]
  4. CELEXA [Concomitant]
  5. PROTONIX [Concomitant]
  6. VIOXX [Concomitant]
  7. SENOKOT [Concomitant]
  8. AMBIEM [Concomitant]
  9. ATIVAN [Concomitant]

REACTIONS (4)
  - BILIARY DILATATION [None]
  - GALLBLADDER DISORDER [None]
  - LIVER FUNCTION TEST ABNORMAL [None]
  - OCULAR ICTERUS [None]
